FAERS Safety Report 4603357-1 (Version None)
Quarter: 2005Q2

REPORT INFORMATION
  Report Type: 
  Country: None (occurrence: None)
  Receive Date: 20050223
  Receipt Date: 20041102
  Transmission Date: 20051028
  Serious: No
  Sender: FDA-Public Use
  Company Number: 210190

PATIENT
  Age: 51 Year
  Sex: Female

DRUGS (2)
  1. RAPTIVA [Suspect]
     Indication: PSORIASIS
     Dosage: SEE IMAGESUBCUTANEOUS
     Route: 058
  2. . [Concomitant]

REACTIONS (1)
  - URTICARIA [None]
